FAERS Safety Report 24064236 (Version 1)
Quarter: 2024Q3

REPORT INFORMATION
  Report Type: Spontaneous
  Country: IT (occurrence: IT)
  Receive Date: 20240709
  Receipt Date: 20240709
  Transmission Date: 20241016
  Serious: Yes (Other)
  Sender: STRIDES
  Company Number: IT-STRIDES ARCOLAB LIMITED-2024SP008030

PATIENT
  Age: 6 Year
  Sex: Female

DRUGS (14)
  1. METHOTREXATE [Interacting]
     Active Substance: METHOTREXATE
     Indication: Burkitt^s lymphoma
     Dosage: 5 GRAM PER SQUARE METRE, CYCLICAL ( IN CYCLE 1, 2, 4 AND 5 (AS A PART OF 6?CYCLES OF CHEMOTHERAPY ON
     Route: 065
  2. ETOPOSIDE [Interacting]
     Active Substance: ETOPOSIDE
     Indication: Burkitt^s lymphoma
     Dosage: 100 MILLIGRAM/SQ. METER, CYCLICAL (IN CYCLE 1, 3, 4 AND 6 (AS A PART OF 6?CYCLES OF CHEMOTHERAPY ON
     Route: 065
  3. EMTRICITABINE\TENOFOVIR DISOPROXIL [Interacting]
     Active Substance: EMTRICITABINE\TENOFOVIR DISOPROXIL
     Indication: HIV infection
     Dosage: UNK
     Route: 065
  4. DEXAMETHASONE [Interacting]
     Active Substance: DEXAMETHASONE
     Indication: Burkitt^s lymphoma
     Dosage: 10 MILLIGRAM/SQ. METER, CYCLICAL (IN CYCLE 1,2, 4 AND 5 (AS A PART OF 6?CYCLES OF CHEMOTHERAPY ON A
     Route: 065
  5. DEXAMETHASONE [Interacting]
     Active Substance: DEXAMETHASONE
     Dosage: 20 MILLIGRAM/SQ. METER, CYCLICAL (IN CYCLE 3 AND 6 (AS A PART OF 6?CYCLES OF CHEMOTHERAPY ON A 15?DA
     Route: 065
  6. IFOSFAMIDE [Interacting]
     Active Substance: IFOSFAMIDE
     Indication: Burkitt^s lymphoma
     Dosage: 800 MILLIGRAM/SQ. METER, CYCLICAL (IN CYCLE 1 AND 4 (AS A PART OF 6?CYCLES OF CHEMOTHERAPY ON A 15?D
     Route: 065
  7. CYTARABINE [Interacting]
     Active Substance: CYTARABINE
     Indication: Burkitt^s lymphoma
     Dosage: 150 MILLIGRAM/SQ. METER, CYCLICAL (IN CYCLE 1 AND 4 (AS A PART OF 6?CYCLES OF CHEMOTHERAPY ON A 15?D
     Route: 065
  8. CYTARABINE [Interacting]
     Active Substance: CYTARABINE
     Dosage: 3 GRAM PER SQUARE METRE, CYCLICAL (IN CYCLE 3 AND 6 (AS A PART OF 6?CYCLES OF CHEMOTHERAPY ON A 15?D
     Route: 065
  9. VINCRISTINE [Interacting]
     Active Substance: VINCRISTINE
     Indication: Burkitt^s lymphoma
     Dosage: 1.5 MILLIGRAM/SQ. METER, CYCLICAL (IN CYCLE 1, 2, 4 AND 5 (AS A PART OF 6?CYCLES OF CHEMOTHERAPY ON
     Route: 065
  10. CYCLOPHOSPHAMIDE [Interacting]
     Active Substance: CYCLOPHOSPHAMIDE
     Indication: Burkitt^s lymphoma
     Dosage: 200 MILLIGRAM/SQ. METER, CYCLICAL (IN CYCLE 2 AND 5 (AS A PART OF 6?CYCLES OF CHEMOTHERAPY ON A 15?D
     Route: 065
  11. DAUNORUBICIN [Interacting]
     Active Substance: DAUNORUBICIN
     Indication: Burkitt^s lymphoma
     Dosage: 25 MILLIGRAM/SQ. METER, CYCLICAL (IN CYCLE 2 AND 5 (AS A PART OF 6?CYCLES OF CHEMOTHERAPY ON A 15?DA
     Route: 065
  12. VINDESINE [Interacting]
     Active Substance: VINDESINE
     Indication: Burkitt^s lymphoma
     Dosage: 3 MILLIGRAM/SQ. METER, CYCLICAL (IN CYCLE 3 AND 6 (AS A PART OF 6?CYCLES OF CHEMOTHERAPY ON A 15?DAY
     Route: 065
  13. RITUXIMAB [Interacting]
     Active Substance: RITUXIMAB
     Indication: Burkitt^s lymphoma
     Dosage: 375 MILLIGRAM/SQ. METER (EACH CHEMOTHERAPY CYCLE WAS PRECEDED BY AN INFUSION)
     Route: 065
  14. RALTEGRAVIR [Interacting]
     Active Substance: RALTEGRAVIR
     Indication: HIV infection
     Dosage: UNK
     Route: 065

REACTIONS (3)
  - Drug interaction [Recovered/Resolved]
  - Neutropenia [Recovered/Resolved]
  - Off label use [Unknown]
